FAERS Safety Report 17593199 (Version 2)
Quarter: 2021Q1

REPORT INFORMATION
  Report Type: Spontaneous
  Country: US (occurrence: US)
  Receive Date: 20200327
  Receipt Date: 20210226
  Transmission Date: 20210419
  Serious: Yes (Death, Other)
  Sender: FDA-Public Use
  Company Number: US-ASTRAZENECA-2020SE42076

PATIENT
  Age: 44 Year
  Sex: Male
  Weight: 101.1 kg

DRUGS (34)
  1. METOPROLOL. [Concomitant]
     Active Substance: METOPROLOL
  2. LEVAQUIN [Concomitant]
     Active Substance: LEVOFLOXACIN
  3. PRILOSEC [Suspect]
     Active Substance: OMEPRAZOLE MAGNESIUM
     Indication: GASTROOESOPHAGEAL REFLUX DISEASE
     Route: 048
     Dates: start: 1992, end: 2017
  4. AMLODIPINE [Concomitant]
     Active Substance: AMLODIPINE BESYLATE
  5. SENSIPAR [Concomitant]
     Active Substance: CINACALCET HYDROCHLORIDE
  6. GABAPENTIN. [Concomitant]
     Active Substance: GABAPENTIN
  7. PREVACID [Suspect]
     Active Substance: LANSOPRAZOLE
     Route: 065
     Dates: start: 1992, end: 2017
  8. AMLODIPINE [Concomitant]
     Active Substance: AMLODIPINE BESYLATE
  9. NOVOLOG [Concomitant]
     Active Substance: INSULIN ASPART
  10. PREVACID 24 HR [Suspect]
     Active Substance: LANSOPRAZOLE
     Indication: GASTROOESOPHAGEAL REFLUX DISEASE
     Route: 065
     Dates: start: 1992, end: 2017
  11. RENAGEL [Concomitant]
     Active Substance: SEVELAMER HYDROCHLORIDE
  12. PROTONIX [Suspect]
     Active Substance: PANTOPRAZOLE SODIUM
     Indication: GASTROOESOPHAGEAL REFLUX DISEASE
     Route: 065
     Dates: start: 1992, end: 2017
  13. OXYCODONE [Concomitant]
     Active Substance: OXYCODONE
  14. NIFEDIPINE. [Concomitant]
     Active Substance: NIFEDIPINE
  15. FERROUS SULFATE. [Concomitant]
     Active Substance: FERROUS SULFATE
  16. DOXEPIN [Concomitant]
     Active Substance: DOXEPIN
  17. LOVENOX [Concomitant]
     Active Substance: ENOXAPARIN SODIUM
  18. CLOTRIMAZOLE. [Concomitant]
     Active Substance: CLOTRIMAZOLE
  19. OFLOXACIN. [Concomitant]
     Active Substance: OFLOXACIN
  20. ATORVASTATIN [Concomitant]
     Active Substance: ATORVASTATIN
  21. CLOBETASOL [Concomitant]
     Active Substance: CLOBETASOL
  22. NEXIUM [Suspect]
     Active Substance: ESOMEPRAZOLE MAGNESIUM
     Indication: GASTROOESOPHAGEAL REFLUX DISEASE
     Route: 048
     Dates: start: 1992, end: 2017
  23. PREDNISOLONE. [Concomitant]
     Active Substance: PREDNISOLONE
  24. WARFARIN [Concomitant]
     Active Substance: WARFARIN
  25. MORPHINE [Concomitant]
     Active Substance: MORPHINE
  26. LANTUS [Concomitant]
     Active Substance: INSULIN GLARGINE
  27. FLUOCINOLONE [Concomitant]
     Active Substance: FLUOCINOLONE
  28. MIRTAZAPINE. [Concomitant]
     Active Substance: MIRTAZAPINE
  29. ZOLPIDEM [Concomitant]
     Active Substance: ZOLPIDEM TARTRATE
  30. NEXIUM [Suspect]
     Active Substance: ESOMEPRAZOLE MAGNESIUM
     Indication: GASTROOESOPHAGEAL REFLUX DISEASE
     Route: 048
     Dates: start: 20070714
  31. NEXIUM 24HR [Suspect]
     Active Substance: ESOMEPRAZOLE MAGNESIUM
     Indication: GASTROOESOPHAGEAL REFLUX DISEASE
     Route: 048
     Dates: start: 1992, end: 2017
  32. PRILOSEC OTC [Suspect]
     Active Substance: OMEPRAZOLE MAGNESIUM
     Indication: GASTROOESOPHAGEAL REFLUX DISEASE
     Route: 048
     Dates: start: 1992, end: 2017
  33. DOCUSATE [Concomitant]
     Active Substance: DOCUSATE
  34. OXYCONTIN [Concomitant]
     Active Substance: OXYCODONE HYDROCHLORIDE

REACTIONS (6)
  - Acute kidney injury [Unknown]
  - Cardiac arrest [Fatal]
  - Chronic kidney disease [Unknown]
  - Retroperitoneal haematoma [Fatal]
  - End stage renal disease [Unknown]
  - Renal failure [Unknown]

NARRATIVE: CASE EVENT DATE: 2004
